FAERS Safety Report 25635674 (Version 1)
Quarter: 2025Q3

REPORT INFORMATION
  Report Type: Spontaneous
  Country: CA (occurrence: CA)
  Receive Date: 20250802
  Receipt Date: 20250802
  Transmission Date: 20251020
  Serious: Yes (Hospitalization)
  Sender: ACCORD
  Company Number: None

PATIENT
  Age: 77 Year
  Sex: Female
  Weight: 90 kg

DRUGS (12)
  1. FLUOROURACIL [Suspect]
     Active Substance: FLUOROURACIL
     Indication: Rectal adenocarcinoma
     Route: 042
  2. ACETAMINOPHEN [Concomitant]
     Active Substance: ACETAMINOPHEN
  3. ASPIRIN [Concomitant]
     Active Substance: ASPIRIN
  4. ATORVASTATIN [Concomitant]
     Active Substance: ATORVASTATIN
  5. FOLIC ACID [Concomitant]
     Active Substance: FOLIC ACID
  6. LOPERAMIDE [Concomitant]
     Active Substance: LOPERAMIDE
  7. NITROGLYCERIN [Concomitant]
     Active Substance: NITROGLYCERIN
  8. DILTIAZEM [Concomitant]
     Active Substance: DILTIAZEM
  9. OLANZAPINE [Concomitant]
     Active Substance: OLANZAPINE
  10. OXALIPLATIN [Concomitant]
     Active Substance: OXALIPLATIN
  11. PANTOPRAZOLE [Concomitant]
     Active Substance: PANTOPRAZOLE
  12. POLYETHYLENE GLYCOL [Concomitant]
     Active Substance: POLYETHYLENE GLYCOL

REACTIONS (2)
  - Vasospasm [Recovered/Resolved]
  - Pericarditis [Recovered/Resolved]
